FAERS Safety Report 5017024-6 (Version None)
Quarter: 2006Q2

REPORT INFORMATION
  Report Type: 
  Country: None (occurrence: None)
  Receive Date: 20060414
  Receipt Date: 20051229
  Transmission Date: 20061013
  Serious: Yes (Other)
  Sender: FDA-Public Use
  Company Number: 2006001783

PATIENT
  Age: 99 Year
  Sex: Female

DRUGS (5)
  1. MACUGEN [Suspect]
     Indication: MACULAR DEGENERATION
     Dosage: INTRAVITREOUS
     Dates: start: 20051205, end: 20051205
  2. DIGOXIN [Concomitant]
  3. ARICEPT [Concomitant]
  4. TIAZAC [Concomitant]
  5. WARFARIN (WARFARIN) [Concomitant]

REACTIONS (1)
  - ENDOPHTHALMITIS [None]
